FAERS Safety Report 7234462-1 (Version None)
Quarter: 2011Q1

REPORT INFORMATION
  Report Type: 
  Country: None (occurrence: None)
  Receive Date: 20110119
  Receipt Date: 20110113
  Transmission Date: 20110831
  Serious: Yes (Other)
  Sender: FDA-Public Use
  Company Number: US-RB-015744-10

PATIENT
  Age: 47 Year
  Sex: Female

DRUGS (3)
  1. METHADONE [Suspect]
     Indication: PRODUCT USED FOR UNKNOWN INDICATION
     Dosage: UNKNOWN DOSING DETAILS
     Route: 065
  2. SUBOXONE [Suspect]
     Indication: PRODUCT USED FOR UNKNOWN INDICATION
     Dosage: SUBOXONE SUBLINGUAL FILM / DOSAGE UNKNOWN AT THIS TIME.
     Route: 065
  3. ALCOHOL [Suspect]
     Indication: PRODUCT USED FOR UNKNOWN INDICATION
     Dosage: UNKNOWN DOSING DETAILS
     Route: 065

REACTIONS (24)
  - HYPERSOMNIA [None]
  - MALAISE [None]
  - ABDOMINAL PAIN UPPER [None]
  - FUNGAL INFECTION [None]
  - OVERDOSE [None]
  - SOMNOLENCE [None]
  - CYSTITIS [None]
  - INSOMNIA [None]
  - CARPAL TUNNEL SYNDROME [None]
  - DEPRESSION [None]
  - TOOTHACHE [None]
  - SUBSTANCE ABUSE [None]
  - ANXIETY [None]
  - MEMORY IMPAIRMENT [None]
  - CONFUSIONAL STATE [None]
  - DRUG DEPENDENCE [None]
  - TOOTH DISORDER [None]
  - SUICIDAL IDEATION [None]
  - NIGHTMARE [None]
  - ABNORMAL SLEEP-RELATED EVENT [None]
  - PAIN IN EXTREMITY [None]
  - NAUSEA [None]
  - APATHY [None]
  - URINARY TRACT INFECTION [None]
